FAERS Safety Report 24569507 (Version 1)
Quarter: 2024Q4

REPORT INFORMATION
  Report Type: Spontaneous
  Country: US (occurrence: None)
  Receive Date: 20241030
  Receipt Date: 20241030
  Transmission Date: 20250115
  Serious: Yes (unspecified)
  Sender: Public
  Company Number: None

PATIENT
  Sex: 0

DRUGS (1)
  1. ZOLEDRONIC ACID [Suspect]
     Active Substance: ZOLEDRONIC ACID
     Indication: Osteoporosis
     Dosage: 5 MG ONCE INTRAVENOUS
     Route: 042
     Dates: start: 20240417, end: 20240417

REACTIONS (1)
  - Uveitis [None]

NARRATIVE: CASE EVENT DATE: 20240614
